FAERS Safety Report 13253813 (Version 1)
Quarter: 2017Q1

REPORT INFORMATION
  Report Type: Report from Study
  Country: RU (occurrence: RU)
  Receive Date: 20170220
  Receipt Date: 20170220
  Transmission Date: 20170428
  Serious: Yes (Other)
  Sender: FDA-Public Use
  Company Number: RU-ALEXION PHARMACEUTICALS INC.-A201700834

PATIENT
  Age: 7 Year
  Sex: Male

DRUGS (1)
  1. SEBELIPASE ALFA [Suspect]
     Active Substance: SEBELIPASE ALFA
     Indication: LYSOSOMAL ACID LIPASE DEFICIENCY
     Dosage: 1 MG/KG, Q2W
     Route: 042
     Dates: start: 20160627

REACTIONS (6)
  - Pigmentation disorder [Recovered/Resolved]
  - Respiratory tract infection viral [Unknown]
  - Blister [Recovered/Resolved]
  - Body temperature increased [Unknown]
  - Pruritus generalised [Recovered/Resolved]
  - Hyperaemia [Recovered/Resolved]

NARRATIVE: CASE EVENT DATE: 20170124
